FAERS Safety Report 8772916 (Version 2)
Quarter: 2012Q4

REPORT INFORMATION
  Report Type: Report from Study
  Country: JP (occurrence: JP)
  Receive Date: 20120907
  Receipt Date: 20121231
  Transmission Date: 20130627
  Serious: Yes (Other)
  Sender: FDA-Public Use
  Company Number: JP-VERTEX PHARMACEUTICAL INC.-AE-2012-005917

PATIENT
  Age: 51 Year
  Sex: Female

DRUGS (11)
  1. VX-950 (TELAPREVIR) [Suspect]
     Indication: CHRONIC HEPATITIS C
     Dosage: 2250 mg, UNK
     Route: 048
     Dates: start: 20120307, end: 20120313
  2. VX-950 (TELAPREVIR) [Suspect]
     Dosage: 1500 UNK, UNK
     Route: 048
     Dates: start: 20120314, end: 20120528
  3. RIBAVIRIN [Suspect]
     Indication: CHRONIC HEPATITIS C
     Dosage: 800 mg, qd
     Route: 048
     Dates: start: 20120307, end: 20120314
  4. RIBAVIRIN [Suspect]
     Dosage: 600 mg, qd
     Route: 048
     Dates: start: 20120315, end: 20120320
  5. RIBAVIRIN [Suspect]
     Dosage: 400 mg, qd
     Route: 048
     Dates: start: 20120321, end: 20120326
  6. RIBAVIRIN [Suspect]
     Dosage: 200 mg, qd
     Route: 048
     Dates: start: 20120327, end: 20120521
  7. RIBAVIRIN [Suspect]
     Dosage: 400 mg, qd
     Route: 048
     Dates: start: 20120522, end: 20120611
  8. RIBAVIRIN [Suspect]
     Dosage: 600 UNK, UNK
     Route: 048
     Dates: start: 20120612, end: 20120820
  9. PEGINTERFERON ALFA-2B [Suspect]
     Indication: CHRONIC HEPATITIS C
     Dosage: 1.5 ?g/kg, weekly
     Route: 058
     Dates: start: 20120307, end: 20120326
  10. PEGINTERFERON ALFA-2B [Suspect]
     Dosage: 1.25 ?g/kg, weekly
     Route: 058
     Dates: start: 20120327, end: 20120417
  11. PEGINTERFERON ALFA-2B [Suspect]
     Dosage: 1.5 ?g/kg, weekly
     Route: 058
     Dates: start: 20120424, end: 20120814

REACTIONS (1)
  - White blood cell count decreased [Recovered/Resolved]
